FAERS Safety Report 21571530 (Version 1)
Quarter: 2022Q4

REPORT INFORMATION
  Report Type: Report from Study
  Country: US (occurrence: US)
  Receive Date: 20221109
  Receipt Date: 20221109
  Transmission Date: 20230113
  Serious: Yes (Other)
  Sender: FDA-Public Use
  Company Number: US-MYLANLABS-202101826648

PATIENT
  Sex: Female

DRUGS (1)
  1. LYRICA [Suspect]
     Active Substance: PREGABALIN
     Indication: Product used for unknown indication
     Dosage: UNK UNK, TID (3X/DAY)
     Route: 065

REACTIONS (11)
  - Nerve injury [Unknown]
  - Cerebrovascular accident [Unknown]
  - Neck surgery [Unknown]
  - Dysgraphia [Unknown]
  - Road traffic accident [Unknown]
  - Pain [Unknown]
  - Speech disorder [Unknown]
  - Injury [Unknown]
  - Blood pressure abnormal [Unknown]
  - Amnesia [Unknown]
  - Eye disorder [Unknown]
